FAERS Safety Report 9664607 (Version 4)
Quarter: 2014Q1

REPORT INFORMATION
  Report Type: Spontaneous
  Country: JP (occurrence: JP)
  Receive Date: 20131101
  Receipt Date: 20140219
  Transmission Date: 20141002
  Serious: Yes (Life-Threatening, Hospitalization, Disabling)
  Sender: FDA-Public Use
  Company Number: JP-BRISTOL-MYERS SQUIBB COMPANY-19724442

PATIENT
  Age: 74 Year
  Sex: Male
  Weight: 47 kg

DRUGS (3)
  1. ERBITUX SOLN FOR INF 5MG/ML [Suspect]
     Indication: OROPHARYNGEAL CANCER
     Dosage: 250MG/M2: UNK TO 11SEP2013?24JUL2013-11SEP13:49DAYS-ONG:250MG/M2
     Route: 041
     Dates: start: 20130718, end: 20130911
  2. DECADRON [Concomitant]
     Indication: PREMEDICATION
     Route: 041
     Dates: start: 20130718, end: 20130911
  3. POLARAMINE [Concomitant]
     Indication: PREMEDICATION
     Route: 041
     Dates: start: 20130718, end: 20130911

REACTIONS (4)
  - Pyrexia [Recovered/Resolved]
  - Pneumonia [Recovered/Resolved with Sequelae]
  - Mucosal inflammation [Recovered/Resolved]
  - Dermatitis [Recovered/Resolved]
